FAERS Safety Report 16087920 (Version 5)
Quarter: 2020Q1

REPORT INFORMATION
  Report Type: Report from Study
  Country: None (occurrence: CH)
  Receive Date: 20190319
  Receipt Date: 20200123
  Transmission Date: 20200409
  Serious: Yes (Hospitalization)
  Sender: FDA-Public Use
  Company Number: CH-ABBVIE-19S-151-2710014-00

PATIENT
  Age: 76 Year
  Sex: Female

DRUGS (7)
  1. DUODOPA [Suspect]
     Active Substance: CARBIDOPA\LEVODOPA
     Dosage: MD: 9 ML CR DAY: 3.9 ML/H ED: 1 ML
     Route: 050
     Dates: start: 20190311, end: 20190328
  2. DUODOPA [Suspect]
     Active Substance: CARBIDOPA\LEVODOPA
     Dosage: MD: 9 ML CRDAY: 3.9 ML/H ED: 1 ML16 H THERAPY
     Route: 050
     Dates: start: 20190328, end: 20190409
  3. DUODOPA [Suspect]
     Active Substance: CARBIDOPA\LEVODOPA
     Dosage: MD: 9 ML CRD: 3.9 ML/H ED: 1 ML 16 H THERAPY
     Route: 050
     Dates: start: 20190409
  4. DUODOPA [Suspect]
     Active Substance: CARBIDOPA\LEVODOPA
     Indication: PARKINSON^S DISEASE
     Route: 050
     Dates: start: 20170522, end: 20171129
  5. DUODOPA [Suspect]
     Active Substance: CARBIDOPA\LEVODOPA
     Dosage: MD: 9 ML CRD: 3.8 ML/H ED: 1 ML, 16H THERAPY
     Route: 050
     Dates: start: 20171129, end: 20180130
  6. DUODOPA [Suspect]
     Active Substance: CARBIDOPA\LEVODOPA
     Dosage: MD: 9 ML CRD: 3.9 ML/H ED: 1 ML, 16H THERAPY
     Route: 050
     Dates: start: 20180130, end: 20190310
  7. QUETIAPIN [Concomitant]
     Active Substance: QUETIAPINE
     Indication: PRODUCT USED FOR UNKNOWN INDICATION

REACTIONS (7)
  - Aggression [Not Recovered/Not Resolved]
  - Intentional medical device removal by patient [Recovered/Resolved]
  - Stoma site hypergranulation [Not Recovered/Not Resolved]
  - Parkinson^s disease [Unknown]
  - Off label use [Recovered/Resolved]
  - Intentional medical device removal by patient [Recovered/Resolved]
  - Wrong technique in device usage process [Unknown]

NARRATIVE: CASE EVENT DATE: 20190310
